FAERS Safety Report 9618178 (Version 3)
Quarter: 2014Q2

REPORT INFORMATION
  Report Type: Report from Study
  Country: GB (occurrence: GB)
  Receive Date: 20131014
  Receipt Date: 20140428
  Transmission Date: 20141212
  Serious: Yes (Disabling, Other)
  Sender: FDA-Public Use
  Company Number: GB-ROCHE-1287591

PATIENT
  Age: 63 Year
  Sex: Female

DRUGS (9)
  1. RANIBIZUMAB [Suspect]
     Indication: PRODUCT USED FOR UNKNOWN INDICATION
     Dosage: RIGHT EYE
     Route: 050
     Dates: start: 20101203
  2. RANIBIZUMAB [Suspect]
     Dosage: RIGHT EYE
     Route: 050
     Dates: start: 20120525
  3. RANIBIZUMAB [Suspect]
     Dosage: RIGHT EYE
     Route: 050
     Dates: start: 20120816
  4. RANIBIZUMAB [Suspect]
     Route: 050
     Dates: start: 20130918, end: 20130918
  5. AMITRIPTYLINE [Concomitant]
     Route: 065
  6. CO-CODAMOL [Concomitant]
  7. ASPIRIN [Concomitant]
  8. SIMVASTATIN [Concomitant]
  9. LANSOPRAZOLE [Concomitant]

REACTIONS (2)
  - Retinal haemorrhage [Not Recovered/Not Resolved]
  - Visual field defect [Unknown]
